FAERS Safety Report 5182920-6 (Version None)
Quarter: 2006Q4

REPORT INFORMATION
  Report Type: 
  Country: None (occurrence: None)
  Receive Date: 20061212
  Receipt Date: 20061206
  Transmission Date: 20070319
  Serious: Yes (Death, Hospitalization)
  Sender: FDA-Public Use
  Company Number: 230653

PATIENT
  Age: 59 Year
  Sex: Male
  Weight: 100.7 kg

DRUGS (10)
  1. BEVACIZUMAB(BEVACIZUMAB) PWDR + SOLVENT,INFUSION SOLN, 100MG [Suspect]
     Indication: GLIOBLASTOMA MULTIFORME
     Dosage: 977 MG, Q2W, INTRAVENOUS
     Route: 042
     Dates: start: 20060918
  2. DECADRON [Suspect]
     Indication: OEDEMA
     Dosage: SEE IMAGE
     Dates: start: 20060720, end: 20060828
  3. DECADRON [Suspect]
     Indication: OEDEMA
     Dosage: SEE IMAGE
     Dates: start: 20060828, end: 20060901
  4. DECADRON [Suspect]
     Indication: OEDEMA
     Dosage: SEE IMAGE
     Dates: start: 20060901
  5. KEPPRA [Concomitant]
  6. PRAVASTATIN SODIUM [Concomitant]
  7. PEPCID [Concomitant]
  8. EFFEXOR [Concomitant]
  9. EFFEXOR XR [Concomitant]
  10. ATENOLOL [Concomitant]

REACTIONS (21)
  - ACIDOSIS [None]
  - BACTERIAL INFECTION [None]
  - BLOOD GLUCOSE INCREASED [None]
  - BLOOD SODIUM DECREASED [None]
  - BLOOD UREA INCREASED [None]
  - BRONCHIAL OBSTRUCTION [None]
  - ELECTROMECHANICAL DISSOCIATION [None]
  - HAEMATOCRIT DECREASED [None]
  - HAEMOGLOBIN DECREASED [None]
  - HYPOTENSION [None]
  - LOBAR PNEUMONIA [None]
  - LYMPHOCYTE PERCENTAGE DECREASED [None]
  - NEUTROPENIC INFECTION [None]
  - NEUTROPHIL PERCENTAGE DECREASED [None]
  - PLATELET COUNT DECREASED [None]
  - RED BLOOD CELL COUNT DECREASED [None]
  - RESPIRATORY FAILURE [None]
  - SEPSIS [None]
  - SINUS TACHYCARDIA [None]
  - SPUTUM CULTURE POSITIVE [None]
  - WHITE BLOOD CELL COUNT DECREASED [None]
